FAERS Safety Report 11898475 (Version 1)
Quarter: 2016Q1

REPORT INFORMATION
  Report Type: Spontaneous
  Country: FR (occurrence: FR)
  Receive Date: 20160108
  Receipt Date: 20160108
  Transmission Date: 20160526
  Serious: Yes (Hospitalization)
  Sender: FDA-Public Use
  Company Number: ALCN2015FR008140

PATIENT
  Age: 23 Month
  Sex: Male
  Weight: 11 kg

DRUGS (1)
  1. ATROPINE SULFATE. [Suspect]
     Active Substance: ATROPINE SULFATE
     Indication: OPHTHALMOLOGICAL EXAMINATION
     Dosage: 1 GTT, BID
     Route: 047
     Dates: start: 20151025, end: 20151030

REACTIONS (2)
  - Mydriasis [Recovered/Resolved]
  - Agitation [Recovered/Resolved]

NARRATIVE: CASE EVENT DATE: 201510
